FAERS Safety Report 7747084-0 (Version None)
Quarter: 2011Q3

REPORT INFORMATION
  Report Type: 
  Country: None (occurrence: None)
  Receive Date: 20110913
  Receipt Date: 20110912
  Transmission Date: 20111222
  Serious: Yes (Death, Other)
  Sender: FDA-Public Use
  Company Number: PHHY2011CA67107

PATIENT
  Sex: Male

DRUGS (5)
  1. EXELON [Concomitant]
  2. CLOZAPINE [Suspect]
     Indication: HALLUCINATION
  3. CLOZAPINE [Suspect]
     Indication: DEMENTIA
     Dosage: 37.5 MG, DAILY
     Dates: start: 20080201, end: 20110701
  4. CLOZAPINE [Suspect]
     Indication: PARKINSON'S DISEASE
  5. SINEMET [Concomitant]

REACTIONS (4)
  - PNEUMONIA ASPIRATION [None]
  - PARKINSON'S DISEASE [None]
  - HALLUCINATION [None]
  - DEMENTIA [None]
